FAERS Safety Report 9958971 (Version 2)
Quarter: 2014Q1

REPORT INFORMATION
  Report Type: Report from Study
  Country: US (occurrence: US)
  Receive Date: 20140305
  Receipt Date: 20140305
  Transmission Date: 20141002
  Serious: No
  Sender: FDA-Public Use
  Company Number: US-ABBVIE-13P-163-1099327-00

PATIENT
  Sex: Female
  Weight: 87.17 kg

DRUGS (17)
  1. HUMIRA [Suspect]
     Indication: PSORIASIS
     Route: 058
     Dates: start: 20130430
  2. FUROSEMIDE [Concomitant]
     Indication: HYPERTENSION
  3. LISINOPRIL [Concomitant]
     Indication: HYPERTENSION
  4. AMLODIPINE [Concomitant]
     Indication: HYPERTENSION
  5. CARVEDILOL [Concomitant]
     Indication: HYPERTENSION
  6. L-THYROXINE [Concomitant]
     Indication: THYROIDECTOMY
  7. OXYCODONE W/APAP [Concomitant]
     Indication: POLYARTHRITIS
     Dosage: 5/325 MG UP TO 6 PER DAY, USUALLY TAKES 5
  8. OXYCODONE W/APAP [Concomitant]
     Indication: FIBROMYALGIA
  9. TRAMADOL [Concomitant]
     Indication: FIBROMYALGIA
  10. CYCLOBENZAPRINE [Concomitant]
     Indication: PRODUCT USED FOR UNKNOWN INDICATION
     Dosage: BEFORE BED
  11. FISH OIL [Concomitant]
     Indication: PRODUCT USED FOR UNKNOWN INDICATION
  12. OMEGA 3 [Concomitant]
     Indication: PRODUCT USED FOR UNKNOWN INDICATION
  13. CLOBETASOL PROPIONATE [Concomitant]
     Indication: PSORIASIS
     Dosage: TO HANDS
  14. CINNAMON [Concomitant]
     Indication: BLOOD GLUCOSE ABNORMAL
  15. VITAMIN D [Concomitant]
     Indication: VITAMIN D DECREASED
  16. FLEXERIL [Concomitant]
     Indication: FIBROMYALGIA
  17. FLEXERIL [Concomitant]
     Indication: FIBROMYALGIA

REACTIONS (4)
  - Skin fissures [Not Recovered/Not Resolved]
  - Psoriasis [Not Recovered/Not Resolved]
  - Psoriasis [Not Recovered/Not Resolved]
  - Injection site rash [Not Recovered/Not Resolved]
